FAERS Safety Report 15951587 (Version 3)
Quarter: 2019Q1

REPORT INFORMATION
  Report Type: Report from Study
  Country: US (occurrence: US)
  Receive Date: 20190212
  Receipt Date: 20190321
  Transmission Date: 20190417
  Serious: Yes (Other)
  Sender: FDA-Public Use
  Company Number: PHEH2019US005809

PATIENT
  Age: 34 Year
  Sex: Female
  Weight: 99.7 kg

DRUGS (1)
  1. GLATOPA [Suspect]
     Active Substance: GLATIRAMER ACETATE
     Indication: MULTIPLE SCLEROSIS
     Dosage: 40 MG, TIW (ROTATING SITES)
     Route: 058
     Dates: start: 20190204, end: 20190311

REACTIONS (13)
  - Initial insomnia [Not Recovered/Not Resolved]
  - Drooling [Recovered/Resolved]
  - Syncope [Recovered/Resolved]
  - Malaise [Recovered/Resolved]
  - Speech disorder [Recovered/Resolved]
  - Chest discomfort [Not Recovered/Not Resolved]
  - Dizziness [Recovered/Resolved]
  - Cough [Recovered/Resolved]
  - Influenza like illness [Recovered/Resolved]
  - Dyspnoea [Recovered/Resolved]
  - Pain [Not Recovered/Not Resolved]
  - Flushing [Recovered/Resolved]
  - Head discomfort [Recovered/Resolved]

NARRATIVE: CASE EVENT DATE: 20190204
